FAERS Safety Report 8171874-6 (Version None)
Quarter: 2012Q1

REPORT INFORMATION
  Report Type: 
  Country: None (occurrence: None)
  Receive Date: 20120228
  Receipt Date: 20120221
  Transmission Date: 20120608
  Serious: Yes (Other)
  Sender: FDA-Public Use
  Company Number: GB-ROXANE LABORATORIES, INC.-2012-RO-00688RO

PATIENT
  Age: 20 Month
  Sex: Male
  Weight: 12.5 kg

DRUGS (8)
  1. FLUCONAZOLE [Suspect]
     Route: 033
  2. FLUCONAZOLE [Suspect]
     Indication: FUNGAL PERITONITIS
     Route: 048
  3. FLUCONAZOLE [Suspect]
     Route: 042
  4. METHYLPREDNISOLONE [Suspect]
     Indication: RENAL TRANSPLANT
  5. CASPOFUNGIN ACETATE [Suspect]
     Indication: FUNGAL PERITONITIS
     Route: 042
  6. TACROLIMUS [Suspect]
     Indication: RENAL TRANSPLANT
     Dosage: 5 MG
  7. AZATHIOPRINE [Suspect]
     Indication: RENAL TRANSPLANT
  8. PREDNISOLONE [Suspect]
     Indication: RENAL TRANSPLANT

REACTIONS (6)
  - FUNGAL PERITONITIS [None]
  - GRAFT DYSFUNCTION [None]
  - DRUG LEVEL INCREASED [None]
  - URETERIC OBSTRUCTION [None]
  - TOXICITY TO VARIOUS AGENTS [None]
  - SEPTIC SHOCK [None]
